FAERS Safety Report 5690911-1 (Version None)
Quarter: 2008Q2

REPORT INFORMATION
  Report Type: 
  Country: None (occurrence: None)
  Receive Date: 20080401
  Receipt Date: 20080326
  Transmission Date: 20081010
  Serious: Yes (Life-Threatening, Hospitalization)
  Sender: FDA-Public Use
  Company Number: FR-BRISTOL-MYERS SQUIBB COMPANY-14132013

PATIENT
  Age: 67 Year
  Sex: Male
  Weight: 60 kg

DRUGS (3)
  1. GLUCOPHAGE [Suspect]
     Indication: DIABETES MELLITUS
     Route: 048
     Dates: end: 20071211
  2. DIAMICRON [Concomitant]
     Indication: DIABETES MELLITUS
     Route: 048
     Dates: end: 20071211
  3. GLUCOR [Concomitant]
     Indication: DIABETES MELLITUS
     Route: 048
     Dates: end: 20071211

REACTIONS (3)
  - HEPATIC FAILURE [None]
  - LACTIC ACIDOSIS [None]
  - RENAL FAILURE [None]
